APPROVED DRUG PRODUCT: TIROSINT
Active Ingredient: LEVOTHYROXINE SODIUM
Strength: 0.025MG
Dosage Form/Route: CAPSULE;ORAL
Application: N021924 | Product #002
Applicant: IBSA INSTITUT BIOCHIMIQUE SA
Approved: Oct 13, 2006 | RLD: Yes | RS: No | Type: RX